FAERS Safety Report 8268904-X (Version None)
Quarter: 2012Q2

REPORT INFORMATION
  Report Type: 
  Country: None (occurrence: None)
  Receive Date: 20120409
  Receipt Date: 20120330
  Transmission Date: 20120825
  Serious: Yes (Hospitalization)
  Sender: FDA-Public Use
  Company Number: US-BAYER-201039834NA

PATIENT
  Age: 27 Year
  Sex: Female
  Weight: 83.447 kg

DRUGS (6)
  1. DROSPIRENONE AND ETHINYL ESTRADIOL [Suspect]
     Indication: CONTRACEPTION
     Dosage: UNK
     Route: 048
     Dates: start: 20071101, end: 20081101
  2. KEFLEX [Concomitant]
     Dosage: 500 MG, QID
     Route: 048
     Dates: start: 20081107
  3. LORTAB [Concomitant]
     Indication: PAIN
     Dosage: 7.5 MG, 1-2 EVERY 4-6 HOURS AS NEEDED
     Dates: start: 20081107
  4. FERROUS SULFATE TAB [Concomitant]
     Indication: ANAEMIA
     Dosage: UNK
     Dates: start: 20081110
  5. VICODIN [Concomitant]
     Dosage: UNK
     Dates: end: 20081122
  6. RED BLOOD CELLS [Concomitant]

REACTIONS (2)
  - PULMONARY EMBOLISM [None]
  - FAT EMBOLISM [None]
